FAERS Safety Report 22303158 (Version 1)
Quarter: 2023Q2

REPORT INFORMATION
  Report Type: Report from Study
  Country: US (occurrence: US)
  Receive Date: 20230510
  Receipt Date: 20230510
  Transmission Date: 20230721
  Serious: No
  Sender: FDA-Public Use
  Company Number: US-002147023-NVSC2023US103062

PATIENT
  Sex: Female
  Weight: 68.027 kg

DRUGS (1)
  1. LEQVIO [Suspect]
     Active Substance: INCLISIRAN SODIUM
     Indication: Hypercholesterolaemia
     Dosage: Q6M
     Route: 058
     Dates: start: 20230306

REACTIONS (4)
  - Muscle fatigue [Unknown]
  - Arthralgia [Unknown]
  - Fatigue [Unknown]
  - Injection site pain [Unknown]
